FAERS Safety Report 10932978 (Version 1)
Quarter: 2015Q1

REPORT INFORMATION
  Report Type: Spontaneous
  Country: US (occurrence: None)
  Receive Date: 20150319
  Receipt Date: 20150319
  Transmission Date: 20150721
  Serious: No
  Sender: FDA-Public Use
  Company Number: 2015CT000021

PATIENT
  Age: 53 Year
  Sex: Female
  Weight: 59.42 kg

DRUGS (13)
  1. KORLYM [Suspect]
     Active Substance: MIFEPRISTONE
     Indication: BENIGN NEOPLASM OF ADRENAL GLAND
     Route: 048
     Dates: start: 20140821, end: 201501
  2. LEVOTHYROXINE [Concomitant]
     Active Substance: LEVOTHYROXINE
  3. LOSARTAN [Concomitant]
     Active Substance: LOSARTAN
  4. MAGNESIUM [Concomitant]
     Active Substance: MAGNESIUM
  5. FUROSEMIDE. [Concomitant]
     Active Substance: FUROSEMIDE
  6. ATENOLOL. [Concomitant]
     Active Substance: ATENOLOL
  7. POTASSIUM [Concomitant]
     Active Substance: POTASSIUM
  8. PHOSPHAS [Concomitant]
  9. SPIRONOLACTONE. [Concomitant]
     Active Substance: SPIRONOLACTONE
  10. INSULIN [Concomitant]
     Active Substance: INSULIN NOS
  11. HYDRALAZINE [Concomitant]
     Active Substance: HYDRALAZINE HYDROCHLORIDE
  12. METFORMIN [Concomitant]
     Active Substance: METFORMIN HYDROCHLORIDE
  13. KORLYM [Suspect]
     Active Substance: MIFEPRISTONE
     Indication: ADRENAL DISORDER
     Route: 048
     Dates: start: 20140821, end: 201501

REACTIONS (7)
  - Local swelling [None]
  - Urticaria [None]
  - Nasopharyngitis [None]
  - Influenza like illness [None]
  - Hot flush [None]
  - Contusion [None]
  - Headache [None]

NARRATIVE: CASE EVENT DATE: 201501
